FAERS Safety Report 7374667-2 (Version None)
Quarter: 2011Q1

REPORT INFORMATION
  Report Type: 
  Country: None (occurrence: None)
  Receive Date: 20110325
  Receipt Date: 20100701
  Transmission Date: 20110831
  Serious: No
  Sender: FDA-Public Use
  Company Number: US-MYLANLABS-2010S1012086

PATIENT
  Age: 49 Year
  Sex: Male
  Weight: 72.58 kg

DRUGS (3)
  1. FENTANYL-100 [Suspect]
     Indication: BACK PAIN
     Dosage: CHANGED PATCHES Q2D
     Route: 062
     Dates: start: 20090601
  2. NUCYNTA [Concomitant]
     Indication: PAIN
  3. EFFEXOR [Concomitant]
     Indication: DEPRESSION

REACTIONS (4)
  - HYPERHIDROSIS [None]
  - DRUG INEFFECTIVE [None]
  - DRUG WITHDRAWAL SYNDROME [None]
  - BACK PAIN [None]
